FAERS Safety Report 8028905-3 (Version None)
Quarter: 2012Q1

REPORT INFORMATION
  Report Type: 
  Country: None (occurrence: None)
  Receive Date: 20120106
  Receipt Date: 20111228
  Transmission Date: 20120608
  Serious: Yes (Other)
  Sender: FDA-Public Use
  Company Number: ZA-GLAXOSMITHKLINE-B0772783A

PATIENT
  Sex: Female

DRUGS (1)
  1. WELLBUTRIN SR [Suspect]
     Indication: COMPLICATED MIGRAINE
     Dosage: 150MG PER DAY
     Route: 065
     Dates: start: 20110615

REACTIONS (5)
  - ABDOMINAL RIGIDITY [None]
  - ABDOMINAL DISTENSION [None]
  - CONSTIPATION [None]
  - PAIN [None]
  - DECREASED APPETITE [None]
